FAERS Safety Report 9833259 (Version 2)
Quarter: 2014Q1

REPORT INFORMATION
  Report Type: Spontaneous
  Country: US (occurrence: US)
  Receive Date: 20140121
  Receipt Date: 20140319
  Transmission Date: 20141002
  Serious: Yes (Other)
  Sender: FDA-Public Use
  Company Number: US-PFIZER INC-2014019722

PATIENT
  Age: 57 Year
  Sex: Female

DRUGS (9)
  1. ZOLOFT [Suspect]
     Indication: DEPRESSION
     Dosage: 100 MG, UNK
     Route: 048
  2. ZOLOFT [Suspect]
     Dosage: 200 MG, UNK
     Route: 048
  3. SERTRALINE HCL [Suspect]
     Indication: DEPRESSION
     Dosage: 100 MG, UNK
     Route: 048
  4. SERTRALINE HCL [Suspect]
     Dosage: 200 MG, UNK
     Route: 048
  5. LEVOTHYROXINE [Concomitant]
     Dosage: 50 UG, DAILY
     Route: 048
  6. ATENOLOL [Concomitant]
     Dosage: 25 MG, DAILY
     Route: 048
  7. ADVIL [Concomitant]
     Dosage: UNK
     Route: 048
  8. PERCOCET [Concomitant]
     Dosage: UNK, AS NEEDED
  9. CALCIUM [Concomitant]
     Dosage: UNK, AS NEEDED

REACTIONS (7)
  - Myelopathy [Unknown]
  - Spinal cord disorder [Unknown]
  - Spinal disorder [Recovering/Resolving]
  - Bone density decreased [Unknown]
  - Osteoporosis [Unknown]
  - Osteopenia [Unknown]
  - Bone disorder [Unknown]
